FAERS Safety Report 14169330 (Version 1)
Quarter: 2017Q4

REPORT INFORMATION
  Report Type: Spontaneous
  Country: US (occurrence: US)
  Receive Date: 20171107
  Receipt Date: 20171107
  Transmission Date: 20180321
  Serious: Yes (Other)
  Sender: FDA-Public Use
  Company Number: US-BEH-2017084841

PATIENT
  Sex: Female
  Weight: 83.45 kg

DRUGS (12)
  1. CREON [Concomitant]
     Active Substance: PANCRELIPASE AMYLASE\PANCRELIPASE LIPASE\PANCRELIPASE PROTEASE
  2. OXYCODONE AND ACETAMINOPHEN [Concomitant]
     Active Substance: ACETAMINOPHEN\OXYCODONE HYDROCHLORIDE
  3. LAMICTAL [Concomitant]
     Active Substance: LAMOTRIGINE
  4. ALBUTEROL                          /00139501/ [Concomitant]
     Active Substance: ALBUTEROL
  5. HIZENTRA [Suspect]
     Active Substance: HUMAN IMMUNOGLOBULIN G
     Dosage: UNK
     Route: 058
  6. MEDROL [Concomitant]
     Active Substance: METHYLPREDNISOLONE
  7. REMERON [Concomitant]
     Active Substance: MIRTAZAPINE
  8. CELEXA [Concomitant]
     Active Substance: CITALOPRAM HYDROBROMIDE
  9. CEFUROXIME. [Concomitant]
     Active Substance: CEFUROXIME
  10. IBUPROFEN. [Concomitant]
     Active Substance: IBUPROFEN
  11. CLARITIN [Concomitant]
     Active Substance: LORATADINE
  12. HIZENTRA [Suspect]
     Active Substance: HUMAN IMMUNOGLOBULIN G
     Indication: PRODUCT USED FOR UNKNOWN INDICATION
     Dosage: 8 G, UNK
     Route: 058
     Dates: start: 20170718

REACTIONS (2)
  - Pancreatitis chronic [Unknown]
  - Bronchitis [Unknown]
